FAERS Safety Report 18213150 (Version 2)
Quarter: 2020Q3

REPORT INFORMATION
  Report Type: Spontaneous
  Country: US (occurrence: US)
  Receive Date: 20200831
  Receipt Date: 20200924
  Transmission Date: 20201103
  Serious: Yes (Hospitalization, Other)
  Sender: FDA-Public Use
  Company Number: US-SA-2020SA208175

PATIENT

DRUGS (24)
  1. AUBAGIO [Suspect]
     Active Substance: TERIFLUNOMIDE
     Dosage: 14 MG, QD
     Route: 048
     Dates: start: 2014, end: 2016
  2. IBUPROFEN. [Concomitant]
     Active Substance: IBUPROFEN
     Indication: PAIN
     Dosage: 800 MG, Q8H
     Route: 048
  3. HYDROCORTISONE. [Concomitant]
     Active Substance: HYDROCORTISONE
     Indication: PRURITUS
     Dosage: UNK UNK, TID
     Route: 061
  4. ROBAXIN [Concomitant]
     Active Substance: METHOCARBAMOL
     Dosage: 750 MG
  5. GABAPENTIN. [Suspect]
     Active Substance: GABAPENTIN
     Indication: PARAESTHESIA
     Dosage: 300 MG, TID
     Route: 048
  6. PREDNISOLONE ACETATE. [Concomitant]
     Active Substance: PREDNISOLONE ACETATE
  7. AUBAGIO [Suspect]
     Active Substance: TERIFLUNOMIDE
     Indication: MULTIPLE SCLEROSIS
     Dosage: 14 MG, QD
     Route: 048
     Dates: start: 2013
  8. AUBAGIO [Suspect]
     Active Substance: TERIFLUNOMIDE
     Dosage: 14 MG, QD
     Route: 048
     Dates: end: 2019
  9. TYLENOL [Concomitant]
     Active Substance: ACETAMINOPHEN
     Dosage: 1000 MG (500X2TAB), TID (PRN)
  10. FML [Concomitant]
     Active Substance: FLUOROMETHOLONE
     Dosage: 1 DROP, QID
     Route: 047
  11. OMEPRAZOLE. [Concomitant]
     Active Substance: OMEPRAZOLE
  12. AMOXICILLIN AND CLAVUNATE POTASSIUM [Concomitant]
     Active Substance: AMOXICILLIN\CLAVULANATE POTASSIUM
  13. TRAMADOL HCL [Concomitant]
     Active Substance: TRAMADOL HYDROCHLORIDE
  14. AUBAGIO [Suspect]
     Active Substance: TERIFLUNOMIDE
     Dosage: 14 MG, QD
     Route: 048
  15. VOLTAREN [Concomitant]
     Active Substance: DICLOFENAC SODIUM
     Dosage: PLACE ON SKIN
  16. ATROPINE OPHTHALMIC [Concomitant]
     Dosage: 1 DROP, BID
     Route: 047
  17. ILOTYCIN [ERYTHROMYCIN] [Concomitant]
     Dosage: APPLY 1/4 STRIP TO BOTH EYES
  18. LIDODERM [Concomitant]
     Active Substance: LIDOCAINE
  19. MELATONIN [Concomitant]
     Active Substance: MELATONIN
     Dosage: 3 MG, HS
     Route: 048
  20. OCUFLOX [Concomitant]
     Active Substance: OFLOXACIN
     Dosage: 1 DROP, QID
     Route: 047
  21. BACLOFEN. [Suspect]
     Active Substance: BACLOFEN
     Route: 065
  22. PRILOSEC [Concomitant]
     Active Substance: OMEPRAZOLE MAGNESIUM
     Dosage: 40 MG, QD
     Route: 048
  23. ZOFRAN [Concomitant]
     Active Substance: ONDANSETRON HYDROCHLORIDE
     Dosage: 4 MG, Q6H
     Route: 048
  24. PRED FORTE [Concomitant]
     Active Substance: PREDNISOLONE ACETATE
     Dosage: 1 DROP, QID
     Route: 047

REACTIONS (27)
  - Confusional state [Recovered/Resolved]
  - Accidental overdose [Unknown]
  - Insomnia [Unknown]
  - Fall [Unknown]
  - Sleep disorder [Unknown]
  - Hypoaesthesia [Unknown]
  - Condition aggravated [Unknown]
  - Multiple sclerosis [Unknown]
  - Peripheral swelling [Unknown]
  - Biopsy muscle [Unknown]
  - Drug ineffective [Unknown]
  - Pulmonary embolism [Unknown]
  - Muscle spasticity [Unknown]
  - Vitamin D deficiency [Unknown]
  - Iritis [Unknown]
  - Hallucination [Recovered/Resolved]
  - Neuralgia [Unknown]
  - Liver function test increased [Unknown]
  - Sedation [Unknown]
  - Gait disturbance [Unknown]
  - Dysaesthesia [Unknown]
  - Endotracheal intubation [Unknown]
  - Urinary incontinence [Unknown]
  - Blood chloride increased [Unknown]
  - Alopecia [Unknown]
  - Alanine aminotransferase increased [Unknown]
  - Hypertension [Unknown]

NARRATIVE: CASE EVENT DATE: 2014
